FAERS Safety Report 14684255 (Version 1)
Quarter: 2018Q1

REPORT INFORMATION
  Report Type: Spontaneous
  Country: US (occurrence: US)
  Receive Date: 20180327
  Receipt Date: 20180327
  Transmission Date: 20180509
  Serious: No
  Sender: FDA-Public Use
  Company Number: US-AUROBINDO-AUR-APU-2017-42107

PATIENT
  Sex: Female

DRUGS (2)
  1. TRAMADOL. [Concomitant]
     Active Substance: TRAMADOL
     Indication: PRODUCT USED FOR UNKNOWN INDICATION
     Dosage: UNK
     Route: 065
  2. GABAPENTIN CAPSULES 100 MG [Suspect]
     Active Substance: GABAPENTIN
     Indication: PAIN IN EXTREMITY
     Dosage: 10 CAPSULES PER DAY.(04 CAPSULES IN THE MORNING AND 03 AT AFTERNOON AND 03 AT BED TIME)
     Route: 065
     Dates: start: 2017, end: 20171011

REACTIONS (4)
  - Vomiting [Unknown]
  - Nausea [Unknown]
  - Facial pain [Unknown]
  - Drug ineffective [Unknown]
